FAERS Safety Report 23563425 (Version 3)
Quarter: 2024Q2

REPORT INFORMATION
  Report Type: Spontaneous
  Country: DE (occurrence: DE)
  Receive Date: 20240226
  Receipt Date: 20240523
  Transmission Date: 20240715
  Serious: Yes (Hospitalization, Other)
  Sender: FDA-Public Use
  Company Number: None

PATIENT
  Age: 48 Year
  Sex: Male

DRUGS (27)
  1. HUMIRA [Suspect]
     Active Substance: ADALIMUMAB
     Indication: Rheumatoid arthritis
     Dosage: 40 MG
     Route: 058
     Dates: start: 20170905, end: 20171213
  2. HUMIRA [Suspect]
     Active Substance: ADALIMUMAB
     Indication: Spondyloarthropathy
     Dosage: 40 MG
     Route: 058
     Dates: start: 20171220
  3. HUMIRA [Suspect]
     Active Substance: ADALIMUMAB
     Dosage: 40 MG,DOSAGE FORM: UNSPECIFIED
     Route: 058
     Dates: start: 20170905, end: 20171213
  4. HUMIRA [Suspect]
     Active Substance: ADALIMUMAB
     Dosage: 50.000 MG
     Route: 058
     Dates: start: 20171220
  5. METHOTREXATE [Suspect]
     Active Substance: METHOTREXATE
     Indication: Product used for unknown indication
     Dosage: 7.50 MG/WEEK, START DATE: 15-JUL-2022
     Route: 065
     Dates: end: 20221231
  6. SIMPONI [Suspect]
     Active Substance: GOLIMUMAB
     Indication: Spondyloarthropathy
     Dosage: 100 MG ( IN PRE-FILLED PEN)
     Route: 058
     Dates: start: 20230310
  7. SIMPONI [Suspect]
     Active Substance: GOLIMUMAB
     Dosage: 100.000MG
     Route: 058
     Dates: start: 20230310
  8. SIMPONI [Suspect]
     Active Substance: GOLIMUMAB
     Indication: Axial spondyloarthritis
     Dosage: 50 MG ( IN PRE-FILLED PEN)
     Route: 058
     Dates: start: 20171220, end: 20230309
  9. SIMPONI [Suspect]
     Active Substance: GOLIMUMAB
     Dosage: 50.000MG
     Route: 058
     Dates: start: 20171220
  10. ACEMETACIN [Concomitant]
     Active Substance: ACEMETACIN
     Dosage: 180 MG,DOSAGE FORM: UNSPECIFIED
     Route: 065
     Dates: start: 20170828
  11. ACEMETACIN [Concomitant]
     Active Substance: ACEMETACIN
     Indication: Product used for unknown indication
     Dosage: 180.000MG
     Route: 065
     Dates: start: 20170828
  12. CELECOXIB [Concomitant]
     Active Substance: CELECOXIB
     Dosage: 1400 MG, /WEEK ,0.14/WEEKS
     Route: 065
     Dates: start: 20190122, end: 20211225
  13. CELECOXIB [Concomitant]
     Active Substance: CELECOXIB
     Dosage: 7 DAYS PER WEEK
     Route: 065
     Dates: start: 20220509
  14. CELECOXIB [Concomitant]
     Active Substance: CELECOXIB
     Dosage: 7 DAYS PER WEEK
     Route: 065
     Dates: start: 20220509
  15. CELECOXIB [Concomitant]
     Active Substance: CELECOXIB
     Dosage: 7 DAYS PER WEEK
     Route: 065
     Dates: start: 20221015
  16. CELECOXIB [Concomitant]
     Active Substance: CELECOXIB
     Indication: Axial spondyloarthritis
     Dosage: 1400 MG/WEEK
     Route: 065
     Dates: start: 20190122, end: 20211225
  17. CELECOXIB [Concomitant]
     Active Substance: CELECOXIB
     Dosage: 4 DAYS PER WEEK
     Route: 065
     Dates: start: 20221015
  18. CELECOXIB [Concomitant]
     Active Substance: CELECOXIB
     Dosage: 2800 MG, / A WEEK
     Route: 065
     Dates: start: 20180716, end: 20181215
  19. CELECOXIB [Concomitant]
     Active Substance: CELECOXIB
     Dosage: 2800 MG/WEEKNSAR (NON-STEROIDAL ANTI-RHEUMATIC)
     Route: 065
     Dates: start: 20171124, end: 20180101
  20. CELECOXIB [Concomitant]
     Active Substance: CELECOXIB
     Dosage: 2800 MG/ A WEEK
     Route: 065
     Dates: start: 20180716, end: 20181115
  21. CELECOXIB [Concomitant]
     Active Substance: CELECOXIB
     Dosage: 2800 MG/WEEKNSAR (NON-STEROIDAL ANTI-RHEUMATIC)
     Route: 065
     Dates: start: 20171124, end: 20180101
  22. CELECOXIB [Concomitant]
     Active Substance: CELECOXIB
     Dosage: 400 MG,DOSAGE FORM: UNSPECIFIED
     Route: 065
     Dates: start: 20171124, end: 20180101
  23. CELECOXIB [Concomitant]
     Active Substance: CELECOXIB
     Dosage: UNK
     Route: 065
  24. CELECOXIB [Concomitant]
     Active Substance: CELECOXIB
     Dosage: UNK
     Route: 065
  25. ETORICOXIB [Concomitant]
     Active Substance: ETORICOXIB
     Indication: Product used for unknown indication
     Dosage: 120 MG,FREQUENCY 0.14 MG 840 MG PER DAY=840/7=120 MG ONCE
     Route: 065
     Dates: start: 20181207, end: 20190122
  26. ETORICOXIB [Concomitant]
     Active Substance: ETORICOXIB
     Indication: Product used for unknown indication
     Dosage: 840 MG PER DAY=840/7=120 MG ONCE
     Route: 065
     Dates: start: 20181207, end: 20190122
  27. METHOTREXATE [Concomitant]
     Active Substance: METHOTREXATE
     Indication: Product used for unknown indication
     Dosage: 7.50 MG/WEEKUNK
     Route: 065
     Dates: start: 20220715, end: 20221231

REACTIONS (42)
  - Chronic gastritis [Not Recovered/Not Resolved]
  - Lymphadenopathy mediastinal [Unknown]
  - Axial spondyloarthritis [Unknown]
  - Chronic idiopathic pain syndrome [Recovered/Resolved]
  - Colorectal adenoma [Recovered/Resolved]
  - Intervertebral disc protrusion [Not Recovered/Not Resolved]
  - Oral herpes [Unknown]
  - Chronic idiopathic pain syndrome [Unknown]
  - Lymphadenopathy mediastinal [Unknown]
  - Restless legs syndrome [Recovered/Resolved]
  - Bursitis [Recovered/Resolved]
  - Influenza like illness [Unknown]
  - Arteriosclerosis coronary artery [Unknown]
  - Gastrointestinal infection [Not Recovered/Not Resolved]
  - Depression [Recovered/Resolved]
  - Vertigo [Unknown]
  - Restless legs syndrome [Recovered/Resolved]
  - Sarcoidosis [Unknown]
  - Iridocyclitis [Unknown]
  - Open angle glaucoma [Unknown]
  - Hypertension [Unknown]
  - Emphysema [Unknown]
  - Bronchial hyperreactivity [Unknown]
  - Anaemia [Unknown]
  - Fall [Unknown]
  - Hyperhidrosis [Unknown]
  - Asthma [Unknown]
  - Nausea [Unknown]
  - Iridocyclitis [Unknown]
  - Aortic dilatation [Unknown]
  - Nasopharyngitis [Unknown]
  - Abdominal discomfort [Unknown]
  - Aortic dilatation [Unknown]
  - Chronic obstructive pulmonary disease [Unknown]
  - Abdominal discomfort [Unknown]
  - Diarrhoea [Unknown]
  - Nausea [Unknown]
  - Anaemia [Unknown]
  - Diarrhoea [Unknown]
  - Anaemia [Unknown]
  - Chronic obstructive pulmonary disease [Unknown]
  - Diarrhoea [Unknown]

NARRATIVE: CASE EVENT DATE: 20171225
